FAERS Safety Report 8594181-6 (Version None)
Quarter: 2012Q3

REPORT INFORMATION
  Report Type: 
  Country: None (occurrence: None)
  Receive Date: 20120814
  Receipt Date: 20120801
  Transmission Date: 20120928
  Serious: Yes (Other)
  Sender: FDA-Public Use
  Company Number: NG-009507513-1201USA01983

PATIENT

DRUGS (9)
  1. FORTOVASE [Suspect]
     Indication: HIV INFECTION
     Dosage: 1000 MG, QD
     Route: 048
     Dates: start: 20111207
  2. RALTEGRAVIR [Suspect]
     Indication: HIV INFECTION
     Dosage: 800 MG, QD
     Route: 048
     Dates: start: 20110304, end: 20111207
  3. LOPINAVIR [Suspect]
     Indication: HIV INFECTION
     Route: 048
  4. TRUVADA [Suspect]
     Dates: start: 20081205
  5. EFAVIRENZ [Suspect]
     Dates: start: 20081205
  6. KALETRA [Suspect]
     Route: 048
     Dates: start: 20110304
  7. SULFAMETHOXAZOLE AND TRIMETHOPRIM [Concomitant]
     Indication: ANTIFUNGAL PROPHYLAXIS
     Dosage: 960 MG, QD
     Dates: start: 20110304
  8. CLOTRIMAZOLE [Concomitant]
     Dates: start: 20120203
  9. COMBIVIR [Suspect]
     Indication: HIV INFECTION
     Route: 048
     Dates: start: 20111207

REACTIONS (1)
  - PREGNANCY [None]
